FAERS Safety Report 18460390 (Version 1)
Quarter: 2020Q4

REPORT INFORMATION
  Report Type: Spontaneous
  Country: ES (occurrence: ES)
  Receive Date: 20201104
  Receipt Date: 20201104
  Transmission Date: 20210114
  Serious: Yes (Hospitalization, Other)
  Sender: FDA-Public Use
  Company Number: ES-SCIEGEN-2019SCILIT00291

PATIENT
  Age: 15 Year
  Sex: Female

DRUGS (1)
  1. METFORMIN HYDROCHLORIDETABLETS [Suspect]
     Active Substance: METFORMIN HYDROCHLORIDE
     Indication: PRODUCT USED FOR UNKNOWN INDICATION

REACTIONS (6)
  - Poisoning deliberate [Recovering/Resolving]
  - Renal failure [Recovering/Resolving]
  - Hypoglycaemia [Recovering/Resolving]
  - Toxicity to various agents [Recovered/Resolved]
  - Lactic acidosis [Recovering/Resolving]
  - Suicide attempt [Recovering/Resolving]
